FAERS Safety Report 5850245-9 (Version None)
Quarter: 2008Q3

REPORT INFORMATION
  Report Type: 
  Country: None (occurrence: None)
  Receive Date: 20080819
  Receipt Date: 20080812
  Transmission Date: 20090109
  Serious: Yes (Other)
  Sender: FDA-Public Use
  Company Number: PHEH2008US07052

PATIENT

DRUGS (1)
  1. RECLAST [Suspect]

REACTIONS (11)
  - ARTHRALGIA [None]
  - BONE PAIN [None]
  - HEADACHE [None]
  - HYPOAESTHESIA [None]
  - HYPOPHAGIA [None]
  - MYALGIA [None]
  - PAIN [None]
  - PARAESTHESIA [None]
  - PYREXIA [None]
  - QUALITY OF LIFE DECREASED [None]
  - TOOTH DISORDER [None]
